FAERS Safety Report 14710761 (Version 1)
Quarter: 2018Q2

REPORT INFORMATION
  Report Type: Spontaneous
  Country: US (occurrence: US)
  Receive Date: 20180403
  Receipt Date: 20180403
  Transmission Date: 20180711
  Serious: No
  Sender: FDA-Public Use
  Company Number: US-ROCHE-1917588

PATIENT
  Sex: Male

DRUGS (12)
  1. GLIMEPIRIDE. [Concomitant]
     Active Substance: GLIMEPIRIDE
  2. KLOR-CON [Concomitant]
     Active Substance: POTASSIUM CHLORIDE
  3. DOCUSATE SODIUM. [Concomitant]
     Active Substance: DOCUSATE SODIUM
  4. ERIVEDGE [Suspect]
     Active Substance: VISMODEGIB
     Dosage: 24/JAN/2017
     Route: 048
     Dates: end: 20170329
  5. AMOXICILLIN. [Concomitant]
     Active Substance: AMOXICILLIN
  6. FERROUS SULFATE. [Concomitant]
     Active Substance: FERROUS SULFATE
  7. BUMETANIDE. [Concomitant]
     Active Substance: BUMETANIDE
  8. LEVOTHYROXINE. [Concomitant]
     Active Substance: LEVOTHYROXINE
  9. XARELTO [Concomitant]
     Active Substance: RIVAROXABAN
  10. ERIVEDGE [Suspect]
     Active Substance: VISMODEGIB
     Indication: PRODUCT USED FOR UNKNOWN INDICATION
     Route: 048
     Dates: start: 20161230
  11. AMIODARONE [Concomitant]
     Active Substance: AMIODARONE
  12. COLACE [Concomitant]
     Active Substance: DOCUSATE SODIUM

REACTIONS (2)
  - Ageusia [Unknown]
  - Alopecia [Unknown]
